FAERS Safety Report 20675060 (Version 1)
Quarter: 2022Q2

REPORT INFORMATION
  Report Type: Spontaneous
  Country: AT (occurrence: AT)
  Receive Date: 20220405
  Receipt Date: 20220405
  Transmission Date: 20220721
  Serious: Yes (Hospitalization)
  Sender: FDA-Public Use
  Company Number: None

PATIENT
  Age: 68 Year
  Sex: Male

DRUGS (4)
  1. RISPERDAL [Suspect]
     Active Substance: RISPERIDONE
     Indication: Product used for unknown indication
     Dosage: 0-1-0-2
     Route: 048
     Dates: end: 20210826
  2. COMIRNATY [Suspect]
     Active Substance: TOZINAMERAN
     Indication: COVID-19 immunisation
     Dosage: ERSTE TEILIMPFUNG / FIRST DOSE; IN TOTAL
     Route: 065
     Dates: start: 20210813, end: 20210813
  3. MIRTAZAPINE [Concomitant]
     Active Substance: MIRTAZAPINE
  4. CITALOPRAM [Concomitant]
     Active Substance: CITALOPRAM HYDROBROMIDE

REACTIONS (10)
  - Gait disturbance [Not Recovered/Not Resolved]
  - Pleurothotonus [Recovered/Resolved]
  - Pulmonary embolism [Not Recovered/Not Resolved]
  - Feeling of despair [Not Recovered/Not Resolved]
  - Anxiety [Not Recovered/Not Resolved]
  - Hyperhidrosis [Not Recovered/Not Resolved]
  - Fibrin D dimer increased [Recovering/Resolving]
  - General physical health deterioration [Not Recovered/Not Resolved]
  - Feeling jittery [Not Recovered/Not Resolved]
  - Impaired self-care [Not Recovered/Not Resolved]

NARRATIVE: CASE EVENT DATE: 20210814
